FAERS Safety Report 8417496-0 (Version None)
Quarter: 2012Q2

REPORT INFORMATION
  Report Type: 
  Country: None (occurrence: None)
  Receive Date: 20120606
  Receipt Date: 20120604
  Transmission Date: 20120825
  Serious: Yes (Death, Hospitalization)
  Sender: FDA-Public Use
  Company Number: US-B.I. PHARMACEUTICALS,INC./RIDGEFIELD-2012-BP-10660BP

PATIENT
  Sex: Male
  Weight: 65.77 kg

DRUGS (6)
  1. QUININE SULFATE [Concomitant]
  2. TYLENOL W/ CODEINE NO. 3 [Concomitant]
  3. DIGOXIN [Concomitant]
  4. METOPROLOL TARTRATE [Concomitant]
  5. MECLIZINE [Concomitant]
  6. PRADAXA [Suspect]
     Indication: ATRIAL FIBRILLATION
     Dosage: 300 MG
     Route: 048
     Dates: start: 20111001, end: 20120501

REACTIONS (3)
  - DEATH [None]
  - LARGE INTESTINAL HAEMORRHAGE [None]
  - PULMONARY MASS [None]
